FAERS Safety Report 10082899 (Version 6)
Quarter: 2015Q3

REPORT INFORMATION
  Report Type: Report from Study
  Country: JP (occurrence: JP)
  Receive Date: 20140417
  Receipt Date: 20150803
  Transmission Date: 20151125
  Serious: Yes (Other)
  Sender: FDA-Public Use
  Company Number: JP-UCBSA-118343

PATIENT
  Age: 50 Year
  Sex: Female
  Weight: 67 kg

DRUGS (20)
  1. CERTOLIZUMAB PEGOL RA [Suspect]
     Active Substance: CERTOLIZUMAB PEGOL
     Indication: RHEUMATOID ARTHRITIS
     Dosage: 200MG SYRINGE
     Route: 058
     Dates: start: 20130501, end: 20130529
  2. CERTOLIZUMAB PEGOL RA [Suspect]
     Active Substance: CERTOLIZUMAB PEGOL
     Dosage: 400 MG, EV 4 WEEKS
     Route: 058
     Dates: start: 20140226, end: 20140324
  3. LOXONIN [Concomitant]
     Active Substance: LOXOPROFEN SODIUM
     Dosage: DAILY DOSE: 90 MG
     Route: 048
     Dates: start: 20130918
  4. CRESTOR [Concomitant]
     Active Substance: ROSUVASTATIN CALCIUM
     Dosage: 5MG DAILY
     Route: 048
  5. RECALBON [Concomitant]
     Active Substance: MINODRONIC ACID
     Dosage: 50MG DAILY
     Route: 048
  6. CLARITH [Concomitant]
     Active Substance: CLARITHROMYCIN
     Dosage: 200MG DAILY
     Route: 048
  7. CERTOLIZUMAB PEGOL RA [Suspect]
     Active Substance: CERTOLIZUMAB PEGOL
     Dosage: 400 MG, EV 4 WEEKS
     Route: 058
     Dates: start: 20131225, end: 20140122
  8. CARERAM [Concomitant]
     Active Substance: IGURATIMOD
     Dosage: 50MG DAILY
     Route: 048
     Dates: start: 20130918
  9. GLORIAMIN [Concomitant]
     Dosage: 0.5 G DAILY
     Route: 048
     Dates: start: 20130612
  10. PREDNISOLONE. [Concomitant]
     Active Substance: PREDNISOLONE
     Indication: RHEUMATOID ARTHRITIS
     Dosage: 4MG DAILY
     Route: 048
     Dates: end: 20130917
  11. GLORIAMIN [Concomitant]
     Indication: PROPHYLAXIS
     Dosage: 1G DAILY
     Route: 048
  12. CERTOLIZUMAB PEGOL RA [Suspect]
     Active Substance: CERTOLIZUMAB PEGOL
     Dosage: 200MG SYRINGE
     Route: 058
     Dates: start: 20130612, end: 20130807
  13. CERTOLIZUMAB PEGOL RA [Suspect]
     Active Substance: CERTOLIZUMAB PEGOL
     Dosage: 200MG SYRINGE
     Route: 058
     Dates: start: 20130904, end: 20131211
  14. PREDNISOLONE. [Concomitant]
     Active Substance: PREDNISOLONE
     Dosage: DAILY DOSE: 3.5 MG
     Route: 048
     Dates: start: 20131225, end: 20140225
  15. CARERAM [Concomitant]
     Active Substance: IGURATIMOD
     Indication: RHEUMATOID ARTHRITIS
     Dosage: 25MG DAILY
     Route: 048
     Dates: start: 20130904, end: 20130917
  16. PREDNISOLONE. [Concomitant]
     Active Substance: PREDNISOLONE
     Dosage: 4MG DAILY
     Route: 048
     Dates: start: 20131016, end: 20131224
  17. LOXONIN [Concomitant]
     Active Substance: LOXOPROFEN SODIUM
     Indication: RHEUMATOID ARTHRITIS
     Dosage: 120MG DAILY
     Route: 048
  18. PREDNISOLONE. [Concomitant]
     Active Substance: PREDNISOLONE
     Dosage: 5MG DAILY
     Route: 048
     Dates: start: 20130918, end: 20131015
  19. TRICHLORMETHIAZIDE [Concomitant]
     Active Substance: TRICHLORMETHIAZIDE
     Dosage: 2MG DAILY
     Route: 048
  20. PROGRAF [Concomitant]
     Active Substance: TACROLIMUS\TACROLIMUS ANHYDROUS
     Indication: RHEUMATOID ARTHRITIS
     Dosage: 1MG DAILY
     Route: 048

REACTIONS (4)
  - Pneumonia [Recovered/Resolved]
  - Drug effect incomplete [Unknown]
  - Iron deficiency anaemia [Recovered/Resolved]
  - Rheumatoid arthritis [Recovered/Resolved]

NARRATIVE: CASE EVENT DATE: 20130612
